FAERS Safety Report 10461593 (Version 1)
Quarter: 2014Q3

REPORT INFORMATION
  Report Type: Spontaneous
  Country: SE (occurrence: SE)
  Receive Date: 20140918
  Receipt Date: 20140918
  Transmission Date: 20150326
  Serious: Yes (Other)
  Sender: FDA-Public Use
  Company Number: SE-THROMBOGENICS NV-SPO-2014-1148

PATIENT
  Age: 54 Year
  Sex: Male

DRUGS (1)
  1. JETREA [Suspect]
     Active Substance: OCRIPLASMIN
     Indication: VITREOUS ADHESIONS
     Dosage: 0.125 MG, ONE TIME DOSE
     Route: 031
     Dates: start: 20140505, end: 20140505

REACTIONS (4)
  - Night blindness [Unknown]
  - Chromatopsia [Recovered/Resolved]
  - Photopsia [Unknown]
  - Visual impairment [Unknown]

NARRATIVE: CASE EVENT DATE: 20140506
